FAERS Safety Report 6400577-0 (Version None)
Quarter: 2009Q4

REPORT INFORMATION
  Report Type: 
  Country: None (occurrence: None)
  Receive Date: 20091014
  Receipt Date: 20091005
  Transmission Date: 20100525
  Serious: Yes (Other)
  Sender: FDA-Public Use
  Company Number: GB-PFIZER INC-2009278097

PATIENT
  Age: 33 Year

DRUGS (2)
  1. CHAMPIX [Suspect]
     Indication: SMOKING CESSATION THERAPY
     Dosage: 1 MG, 2X/DAY
     Route: 048
     Dates: start: 20090818, end: 20090824
  2. CHAMPIX [Suspect]
     Dosage: 0.5 MG, 1X/DAY
     Route: 048
     Dates: start: 20090807, end: 20090817

REACTIONS (5)
  - AGITATION [None]
  - GRANDIOSITY [None]
  - INSOMNIA [None]
  - MANIA [None]
  - PSYCHOMOTOR HYPERACTIVITY [None]
